FAERS Safety Report 14188092 (Version 1)
Quarter: 2017Q4

REPORT INFORMATION
  Report Type: Spontaneous
  Country: US (occurrence: US)
  Receive Date: 20171114
  Receipt Date: 20171114
  Transmission Date: 20180321
  Serious: No
  Sender: FDA-Public Use
  Company Number: US-009507513-1710USA016270

PATIENT
  Sex: Female

DRUGS (1)
  1. NEXPLANON [Suspect]
     Active Substance: ETONOGESTREL
     Dosage: IMPLANT
     Route: 059

REACTIONS (5)
  - Complication associated with device [Unknown]
  - Migration of implanted drug [Unknown]
  - Device deployment issue [Unknown]
  - Difficulty removing drug implant [Unknown]
  - Device difficult to use [Unknown]
